FAERS Safety Report 8446369-2 (Version None)
Quarter: 2012Q2

REPORT INFORMATION
  Report Type: 
  Country: None (occurrence: None)
  Receive Date: 20120618
  Receipt Date: 20120612
  Transmission Date: 20120825
  Serious: Yes (Death, Hospitalization, Other)
  Sender: FDA-Public Use
  Company Number: FR-BAXTER-2012BH006214

PATIENT
  Sex: Male

DRUGS (5)
  1. VELCADE [Suspect]
     Route: 042
     Dates: start: 20110829, end: 20111230
  2. LEVOTHYROXINE SODIUM [Concomitant]
     Route: 048
  3. ATACAND [Concomitant]
     Route: 065
     Dates: end: 20111114
  4. NICARDIPINE HYDROCHLORIDE [Concomitant]
     Route: 065
     Dates: end: 20111001
  5. CYCLOPHOSPHAMIDE [Suspect]
     Route: 065
     Dates: start: 20110829, end: 20111230

REACTIONS (5)
  - LEUKAEMIA PLASMACYTIC [None]
  - ANAEMIA [None]
  - PARAESTHESIA [None]
  - DIARRHOEA [None]
  - HYPOTENSION [None]
